FAERS Safety Report 15880233 (Version 2)
Quarter: 2019Q1

REPORT INFORMATION
  Report Type: Spontaneous
  Country: JP (occurrence: JP)
  Receive Date: 20190128
  Receipt Date: 20190207
  Transmission Date: 20190417
  Serious: Yes (Death, Hospitalization, Other)
  Sender: FDA-Public Use
  Company Number: JP-ASTRAZENECA-2018SF67925

PATIENT
  Age: 30221 Day
  Sex: Male
  Weight: 36 kg

DRUGS (10)
  1. ALLOID G [Concomitant]
     Active Substance: SODIUM ALGINATE
     Route: 048
  2. NEXIUM [Concomitant]
     Active Substance: ESOMEPRAZOLE MAGNESIUM
     Route: 048
  3. GASMOTIN [Concomitant]
     Active Substance: MOSAPRIDE CITRATE
     Route: 048
  4. METLIGINE [Concomitant]
     Active Substance: MIDODRINE HYDROCHLORIDE
     Route: 048
     Dates: start: 20181211
  5. LASIX [Concomitant]
     Active Substance: FUROSEMIDE
     Route: 048
  6. FERROMIA [Concomitant]
     Active Substance: SODIUM FERROUS CITRATE
     Route: 048
     Dates: start: 20181018
  7. SPIRONOLACTONE. [Concomitant]
     Active Substance: SPIRONOLACTONE
     Route: 048
  8. TAGRISSO [Suspect]
     Active Substance: OSIMERTINIB
     Indication: NON-SMALL CELL LUNG CANCER
     Route: 048
     Dates: start: 20181106, end: 20181206
  9. ELIQUIS [Concomitant]
     Active Substance: APIXABAN
     Route: 048
  10. BAYASPIRIN [Concomitant]
     Active Substance: ASPIRIN
     Route: 048
     Dates: end: 20181120

REACTIONS (7)
  - Orthostatic hypotension [Fatal]
  - Visual impairment [Fatal]
  - White blood cell count decreased [Recovered/Resolved]
  - Pneumonia aspiration [Fatal]
  - Hepatic enzyme increased [Recovered/Resolved]
  - Loss of personal independence in daily activities [Fatal]
  - Lung disorder [Fatal]

NARRATIVE: CASE EVENT DATE: 20181124
